FAERS Safety Report 8448479-2 (Version None)
Quarter: 2012Q2

REPORT INFORMATION
  Report Type: 
  Country: None (occurrence: None)
  Receive Date: 20120612
  Receipt Date: 20120530
  Transmission Date: 20120825
  Serious: Yes (Hospitalization)
  Sender: FDA-Public Use
  Company Number: GER/GER/12/0024536

PATIENT
  Age: 52 Year
  Sex: Female
  Weight: 55 kg

DRUGS (2)
  1. IBUPROFEN [Suspect]
     Indication: BACK PAIN
     Dosage: 1800 DOSAGE FORMS, 1 D, ORAL
     Route: 048
     Dates: start: 20110701, end: 20111020
  2. KATADOLON S LONG RETARD (FLUPIRTINE MALEATE) [Suspect]
     Indication: BACK PAIN
     Dosage: 1 DOSAGE FORMS, 1 D, ORAL
     Route: 048
     Dates: start: 20110701, end: 20111020

REACTIONS (3)
  - HEPATIC CIRRHOSIS [None]
  - HEPATIC NECROSIS [None]
  - CHOLESTASIS [None]
